FAERS Safety Report 5769635-8 (Version None)
Quarter: 2008Q2

REPORT INFORMATION
  Report Type: 
  Country: None (occurrence: None)
  Receive Date: 20080612
  Receipt Date: 20080401
  Transmission Date: 20081010
  Serious: No
  Sender: FDA-Public Use
  Company Number: US-ABBOTT-08P-163-0445306-00

PATIENT
  Sex: Female
  Weight: 61.29 kg

DRUGS (6)
  1. HUMIRA [Suspect]
     Indication: PSORIATIC ARTHROPATHY
     Route: 058
     Dates: start: 20060401
  2. TRAMADOL HCL [Concomitant]
     Indication: PAIN MANAGEMENT
     Route: 048
  3. ALPRAZOLAM [Concomitant]
     Indication: ANXIETY
     Route: 048
     Dates: start: 20060101
  4. ZOLPIDEM TARTRATE [Concomitant]
     Indication: SLEEP DISORDER THERAPY
     Route: 048
     Dates: start: 20060101
  5. THOMAPYRIN N [Concomitant]
     Indication: PAIN MANAGEMENT
     Route: 048
  6. CLONAZEPAM [Concomitant]
     Indication: ANXIETY
     Route: 048

REACTIONS (3)
  - DEPRESSION [None]
  - DRUG INEFFECTIVE [None]
  - MEMORY IMPAIRMENT [None]
